FAERS Safety Report 9298390 (Version 2)
Quarter: 2013Q2

REPORT INFORMATION
  Report Type: Spontaneous
  Country: FR (occurrence: FR)
  Receive Date: 20130520
  Receipt Date: 20130611
  Transmission Date: 20140414
  Serious: Yes (Hospitalization)
  Sender: FDA-Public Use
  Company Number: FR-PFIZER INC-2013151623

PATIENT
  Age: 84 Year
  Sex: Female

DRUGS (24)
  1. CELEBREX [Suspect]
     Indication: PAIN
     Dosage: 200 MG, 2X/DAY
     Route: 048
     Dates: start: 20130227, end: 20130307
  2. OMEPRAZOLE [Suspect]
     Indication: PRODUCT USED FOR UNKNOWN INDICATION
     Dosage: 20 MG DAILY
     Route: 048
     Dates: start: 20130227, end: 20130307
  3. VANCOMYCINE [Suspect]
     Dosage: UNK
     Route: 065
     Dates: start: 20130305, end: 20130305
  4. KETAMINE [Suspect]
     Indication: ANAESTHESIA
     Dosage: UNK
     Route: 065
     Dates: start: 20130305, end: 20130305
  5. AUGMENTIN [Suspect]
     Indication: PREMEDICATION
     Dosage: UNK
     Route: 065
     Dates: start: 201303, end: 20130307
  6. PARACETAMOL [Suspect]
     Indication: PAIN
     Dosage: 2G DAILY
     Route: 048
     Dates: start: 20130226, end: 20130307
  7. PARACETAMOL [Suspect]
     Indication: PREMEDICATION
     Dosage: 3 G DAILY
     Route: 042
     Dates: start: 20130224, end: 20130225
  8. RANIPLEX [Suspect]
     Indication: PREMEDICATION
     Dosage: UNK
     Route: 048
     Dates: start: 20130305, end: 20130305
  9. PHENYLEPHRINE [Suspect]
  10. CELESTENE [Suspect]
     Indication: ANAESTHESIA
     Dosage: UNK
     Route: 065
     Dates: start: 20130305, end: 20130305
  11. SEVORANE [Suspect]
     Indication: ANAESTHESIA
     Dosage: UNK
     Route: 065
     Dates: start: 20130305, end: 20130305
  12. SUFENTANIL [Suspect]
     Indication: ANAESTHESIA
     Dosage: UNK
     Route: 065
     Dates: start: 20130305, end: 20130305
  13. DIPRIVAN [Suspect]
     Indication: ANAESTHESIA
     Dosage: UNK
     Route: 065
     Dates: start: 20130305, end: 20130305
  14. CELESTENE [Suspect]
  15. EPHEDRINE [Suspect]
     Dosage: UNK
     Dates: start: 20130305, end: 20130305
  16. NEO-SYNEPHRINE [Suspect]
     Dosage: UNK
     Dates: start: 20130305, end: 20130305
  17. DROLEPTAN [Suspect]
     Indication: ANAESTHESIA
     Dosage: UNK
     Route: 065
     Dates: start: 20130305, end: 20130305
  18. MORPHINE [Suspect]
     Dosage: UNK
     Route: 065
     Dates: start: 20130305, end: 20130305
  19. CATAPRESSAN [Suspect]
     Dosage: UNK
     Route: 065
     Dates: start: 20130305, end: 20130305
  20. ACUPAN [Concomitant]
     Dosage: UNK
     Dates: start: 20130305
  21. BRICANYL [Concomitant]
     Indication: PREMEDICATION
     Dosage: UNK
  22. ATROVENT [Concomitant]
     Dosage: UNK
  23. PYOSTACINE [Concomitant]
     Dosage: UNK
  24. APROVEL [Concomitant]
     Dosage: UNK

REACTIONS (2)
  - Hepatocellular injury [Recovering/Resolving]
  - Cholestasis [Recovering/Resolving]
